FAERS Safety Report 4576800-4 (Version None)
Quarter: 2005Q1

REPORT INFORMATION
  Report Type: 
  Country: None (occurrence: None)
  Receive Date: 20050210
  Receipt Date: 20050203
  Transmission Date: 20050727
  Serious: Yes (Hospitalization)
  Sender: FDA-Public Use
  Company Number: DE-BRISTOL-MYERS SQUIBB COMPANY-12847224

PATIENT
  Age: 66 Year
  Sex: Male

DRUGS (2)
  1. SUSTIVA [Suspect]
     Indication: HIV INFECTION
     Dates: start: 20000601
  2. COMBIVIR [Suspect]
     Indication: HIV INFECTION
     Dates: start: 20000601

REACTIONS (1)
  - PHOTOSENSITIVITY REACTION [None]
